FAERS Safety Report 4957454-1 (Version None)
Quarter: 2006Q1

REPORT INFORMATION
  Report Type: 
  Country: None (occurrence: None)
  Receive Date: 20060327
  Receipt Date: 20060310
  Transmission Date: 20060701
  Serious: Yes (Life-Threatening)
  Sender: FDA-Public Use
  Company Number: USA-2006-0023778

PATIENT
  Age: 75 Year
  Sex: Female

DRUGS (1)
  1. CEFDITOREN PIVOXIL (CEFDITOREN PIVOXIL) OTHER [Suspect]
     Indication: RESPIRATORY DISORDER
     Dosage: 400 MG, DAILY, ORAL
     Route: 048
     Dates: start: 20051026, end: 20051027

REACTIONS (1)
  - CONVULSION [None]
